FAERS Safety Report 9188794 (Version 1)
Quarter: 2013Q1

REPORT INFORMATION
  Report Type: Spontaneous
  Country: FR (occurrence: FR)
  Receive Date: 20130326
  Receipt Date: 20130326
  Transmission Date: 20140127
  Serious: Yes (Life-Threatening)
  Sender: FDA-Public Use
  Company Number: FR-ASTRAZENECA-2013SE18497

PATIENT
  Age: 12350 Day
  Sex: Male

DRUGS (7)
  1. LIDOCAINE [Suspect]
     Indication: INDUCTION OF ANAESTHESIA
     Route: 065
     Dates: start: 20120218, end: 20120218
  2. DIPRIVAN [Suspect]
     Indication: INDUCTION OF ANAESTHESIA
     Route: 042
     Dates: start: 20120218, end: 20120218
  3. CELOCURINE [Suspect]
     Indication: INDUCTION OF ANAESTHESIA
     Route: 065
     Dates: start: 20120218, end: 20120218
  4. AUGMENTIN [Suspect]
     Route: 042
     Dates: start: 20120218, end: 20120218
  5. DROLEPTAN [Suspect]
     Route: 042
     Dates: start: 20120218, end: 20120218
  6. KETAMINE [Suspect]
     Route: 042
     Dates: start: 20120218, end: 20120218
  7. SUFENTA [Suspect]
     Route: 042
     Dates: start: 20120218, end: 20120218

REACTIONS (1)
  - Shock [Recovered/Resolved]
